FAERS Safety Report 4999964-7 (Version None)
Quarter: 2006Q2

REPORT INFORMATION
  Report Type: 
  Country: None (occurrence: None)
  Receive Date: 20060509
  Receipt Date: 20050110
  Transmission Date: 20061013
  Serious: Yes (Hospitalization)
  Sender: FDA-Public Use
  Company Number: 2005007919

PATIENT
  Age: 45 Year
  Sex: Female

DRUGS (1)
  1. DEPO-PROVERA [Suspect]
     Indication: ILL-DEFINED DISORDER
     Dosage: 150 MG (150 MG, FIRST INJECTION), INTRAMUSCULAR
     Route: 030
     Dates: start: 19970101, end: 19970101

REACTIONS (7)
  - BALANCE DISORDER [None]
  - CARDIAC FIBRILLATION [None]
  - CEREBRAL INFARCTION [None]
  - FALL [None]
  - HYPERTENSION [None]
  - NAUSEA [None]
  - VISUAL DISTURBANCE [None]
